FAERS Safety Report 6934315-X (Version None)
Quarter: 2010Q3

REPORT INFORMATION
  Report Type: 
  Country: None (occurrence: None)
  Receive Date: 20100820
  Receipt Date: 20100810
  Transmission Date: 20110219
  Serious: Yes (Other)
  Sender: FDA-Public Use
  Company Number: A0857920A

PATIENT
  Age: 79 Year
  Sex: Male
  Weight: 118.2 kg

DRUGS (6)
  1. CARVEDILOL [Suspect]
     Indication: ATRIAL FIBRILLATION
     Route: 048
     Dates: start: 20090101, end: 20090101
  2. LIPITOR [Concomitant]
  3. LOTENSIN [Concomitant]
  4. RELAFEN [Concomitant]
  5. ACTOS [Concomitant]
  6. BENAZEPRIL [Concomitant]

REACTIONS (4)
  - BLOOD PRESSURE FLUCTUATION [None]
  - DIZZINESS [None]
  - HYPOTENSION [None]
  - SYNCOPE [None]
